FAERS Safety Report 23283572 (Version 1)
Quarter: 2023Q4

REPORT INFORMATION
  Report Type: Spontaneous
  Country: CA (occurrence: CA)
  Receive Date: 20231211
  Receipt Date: 20231211
  Transmission Date: 20240110
  Serious: Yes (Other)
  Sender: FDA-Public Use
  Company Number: CA-FreseniusKabi-FK202320028

PATIENT
  Sex: Female

DRUGS (9)
  1. FOLIC ACID [Suspect]
     Active Substance: FOLIC ACID
     Indication: Product used for unknown indication
     Dosage: DOSAGE FORM: NOT SPECIFIED?ROA: UNKNOWN
  2. METHOTREXATE [Suspect]
     Active Substance: METHOTREXATE
     Indication: Product used for unknown indication
     Dosage: DOSAGE FORM: NOT SPECIFIED?ROA: UNKNOWN
  3. METHOTREXATE [Suspect]
     Active Substance: METHOTREXATE
  4. RITUXIMAB [Suspect]
     Active Substance: RITUXIMAB
     Indication: Product used for unknown indication
     Dosage: ROA: UNKNOWN
  5. PREDNISONE [Concomitant]
     Active Substance: PREDNISONE
     Indication: Product used for unknown indication
     Dosage: ROA: UNKNOWN?DOSAGE FORM: NOT SPECIFIED
  6. RITUXIMAB [Concomitant]
     Active Substance: RITUXIMAB
     Indication: Product used for unknown indication
     Dosage: ROA: UNKNOWN
  7. RITUXIMAB [Concomitant]
     Active Substance: RITUXIMAB
     Dosage: ROA: UNKNOWN
  8. SULFASALAZINE [Concomitant]
     Active Substance: SULFASALAZINE
     Indication: Product used for unknown indication
     Dosage: DOSAGE FORM: NOT SPECIFIED?ROA: UNKNOWN
  9. SULFASALAZINE [Concomitant]
     Active Substance: SULFASALAZINE
     Dosage: ROA: UNKNOWN

REACTIONS (11)
  - Arthralgia [Unknown]
  - Arthropathy [Unknown]
  - Deformity [Unknown]
  - Drug ineffective [Unknown]
  - Feeling of body temperature change [Unknown]
  - Hand deformity [Unknown]
  - Joint dislocation [Unknown]
  - Joint swelling [Unknown]
  - Oedema peripheral [Unknown]
  - Pain of skin [Unknown]
  - Rheumatoid arthritis [Unknown]
